FAERS Safety Report 7412434-1 (Version None)
Quarter: 2011Q2

REPORT INFORMATION
  Report Type: 
  Country: None (occurrence: None)
  Receive Date: 20110413
  Receipt Date: 20110401
  Transmission Date: 20111010
  Serious: Yes (Hospitalization)
  Sender: FDA-Public Use
  Company Number: PHHY2011FR27235

PATIENT
  Age: 45 Year
  Sex: Female

DRUGS (3)
  1. LEPONEX [Suspect]
     Dosage: 25 MG, DAILY
  2. LEPONEX [Suspect]
     Dosage: 200 MG, DAILY
  3. LEPONEX [Suspect]
     Dosage: 50 MG, DAILY

REACTIONS (2)
  - LUNG DISORDER [None]
  - PLATELET COUNT INCREASED [None]
